FAERS Safety Report 9693708 (Version 1)
Quarter: 2013Q4

REPORT INFORMATION
  Report Type: Spontaneous
  Country: AU (occurrence: AU)
  Receive Date: 20131118
  Receipt Date: 20131118
  Transmission Date: 20140711
  Serious: Yes (Other)
  Sender: FDA-Public Use
  Company Number: AU-ABBVIE-13P-008-1158170-00

PATIENT
  Age: 48 Year
  Sex: Female

DRUGS (3)
  1. VALPROATE SODIUM [Suspect]
     Indication: PRODUCT USED FOR UNKNOWN INDICATION
     Route: 065
  2. CLOZARIL [Suspect]
     Indication: PRODUCT USED FOR UNKNOWN INDICATION
  3. PAROXETINE HYDROCHLORIDE [Concomitant]
     Indication: PRODUCT USED FOR UNKNOWN INDICATION

REACTIONS (10)
  - Cholestasis [Unknown]
  - Cerebral atrophy [Unknown]
  - Agranulocytosis [Unknown]
  - Hypercalcaemia [Unknown]
  - Psychotic disorder [Unknown]
  - Headache [Unknown]
  - Hepatic steatosis [Unknown]
  - Memory impairment [Unknown]
  - Neutropenia [Unknown]
  - Drug ineffective [Unknown]
